FAERS Safety Report 9463142 (Version 2)
Quarter: 2013Q4

REPORT INFORMATION
  Report Type: Report from Study
  Country: PE (occurrence: PE)
  Receive Date: 20130817
  Receipt Date: 20131118
  Transmission Date: 20140711
  Serious: Yes (Other)
  Sender: FDA-Public Use
  Company Number: PE-ROCHE-1262531

PATIENT
  Age: 40 Year
  Sex: Female

DRUGS (2)
  1. ACTEMRA [Suspect]
     Indication: RHEUMATOID ARTHRITIS
     Route: 042
     Dates: start: 20110110, end: 20130703
  2. AZITHROMYCIN [Concomitant]
     Route: 048
     Dates: start: 20130812, end: 20130814

REACTIONS (3)
  - Choking [Recovered/Resolved]
  - Bronchial disorder [Recovered/Resolved]
  - Cough [Recovered/Resolved]
